FAERS Safety Report 4950280-9 (Version None)
Quarter: 2006Q1

REPORT INFORMATION
  Report Type: 
  Country: None (occurrence: None)
  Receive Date: 20060322
  Receipt Date: 20060227
  Transmission Date: 20060701
  Serious: Yes (Death, Hospitalization)
  Sender: FDA-Public Use
  Company Number: HQWYE045928FEB06

PATIENT
  Sex: Female
  Weight: 30 kg

DRUGS (11)
  1. ENBREL [Suspect]
     Indication: JUVENILE ARTHRITIS
     Route: 058
     Dates: start: 20050425, end: 20060215
  2. METHYLPREDNISOLONE [Concomitant]
     Indication: JUVENILE ARTHRITIS
     Route: 048
     Dates: start: 20000504
  3. FOLIC ACID [Concomitant]
     Indication: JUVENILE ARTHRITIS
     Route: 048
     Dates: start: 19980226
  4. ROXATIDINE ACETATE HCL [Concomitant]
     Indication: PROPHYLAXIS
     Route: 048
     Dates: start: 19970901
  5. HYDROXYCHLOROQUINE SULFATE [Concomitant]
     Indication: JUVENILE ARTHRITIS
     Route: 048
     Dates: start: 20051115
  6. ADCAL [Concomitant]
     Indication: OSTEOPOROSIS
     Route: 065
     Dates: start: 20030117
  7. SULFASALAZINE [Concomitant]
     Indication: JUVENILE ARTHRITIS
     Dosage: 1000 MG
     Route: 048
     Dates: start: 19990210
  8. RISEDRONATE [Concomitant]
     Indication: OSTEOPOROSIS
     Dosage: 35 MG
     Route: 048
     Dates: start: 20060131
  9. HERBAL SUPPLEMENT [Concomitant]
     Indication: PROPHYLAXIS
     Route: 065
     Dates: start: 20050303
  10. FERRIC HYDROXIDE COLLOIDAL [Concomitant]
     Indication: ANAEMIA
     Dosage: 100 MG (SYRUP) AT UNKNOWN FREQUENCY
     Route: 048
     Dates: start: 20051004
  11. METHOTREXATE [Concomitant]
     Route: 065
     Dates: start: 19980226

REACTIONS (3)
  - ACUTE RESPIRATORY DISTRESS SYNDROME [None]
  - CHOLECYSTITIS ACUTE [None]
  - SEPSIS [None]
